FAERS Safety Report 4353423-3 (Version None)
Quarter: 2004Q2

REPORT INFORMATION
  Report Type: 
  Country: None (occurrence: None)
  Receive Date: 20040430
  Receipt Date: 20040426
  Transmission Date: 20050107
  Serious: Yes (Hospitalization)
  Sender: FDA-Public Use
  Company Number: 2004AP01857

PATIENT
  Age: 84 Year
  Sex: Female

DRUGS (7)
  1. ATENOLOL [Suspect]
     Indication: HYPERTENSION
     Dates: end: 20040101
  2. NORVASC [Suspect]
     Indication: HYPERTENSION
     Dosage: 5 MG DAILY PO
     Route: 048
     Dates: start: 20020101, end: 20040101
  3. NORVASC [Suspect]
     Indication: HYPERTENSION
     Dosage: 10 MG DAILY PO
     Route: 048
     Dates: start: 20040101, end: 20040101
  4. NORVASC [Suspect]
     Indication: HYPERTENSION
     Dosage: 5 MG DAILY PO
     Route: 048
     Dates: start: 20040101, end: 20040225
  5. LANSOPRAZOLE [Suspect]
     Indication: FLATULENCE
     Dates: start: 20040115
  6. ASPIRIN [Suspect]
     Dates: start: 20040115
  7. PAXIL [Suspect]

REACTIONS (12)
  - BLOOD PRESSURE INCREASED [None]
  - CHEST PAIN [None]
  - DIZZINESS [None]
  - DRUG ERUPTION [None]
  - FATIGUE [None]
  - FLATULENCE [None]
  - HAEMATOCHEZIA [None]
  - NAUSEA [None]
  - OEDEMA PERIPHERAL [None]
  - RASH [None]
  - SKIN ATROPHY [None]
  - SKIN DISORDER [None]
